FAERS Safety Report 5092383-7 (Version None)
Quarter: 2006Q3

REPORT INFORMATION
  Report Type: 
  Country: None (occurrence: None)
  Receive Date: 20060825
  Receipt Date: 20060817
  Transmission Date: 20061208
  Serious: Yes (Disabling)
  Sender: FDA-Public Use
  Company Number: 228865

PATIENT
  Age: 83 Year
  Sex: Female

DRUGS (6)
  1. LUCENTIS [Suspect]
     Indication: DRUG USE FOR UNKNOWN INDICATION
     Dosage: SINGLE, SUBCUTANEOUS
     Route: 058
     Dates: start: 20060719
  2. CELEBREX [Concomitant]
  3. VITAMINS (VITAMINS NOS) [Concomitant]
  4. CALCIUM (CALCIUM NOS) [Concomitant]
  5. GLUCOSAMINE/CHONDROITIN (CHONDROITIN SULFATE, GLUCOSAMINE) [Concomitant]
  6. ACETAMINOPHEN [Concomitant]

REACTIONS (7)
  - ARTHRALGIA [None]
  - ASTHENIA [None]
  - BACK PAIN [None]
  - DEPRESSION [None]
  - FATIGUE [None]
  - MOVEMENT DISORDER [None]
  - PAIN [None]
